FAERS Safety Report 10034037 (Version 2)
Quarter: 2014Q2

REPORT INFORMATION
  Report Type: Spontaneous
  Country: US (occurrence: US)
  Receive Date: 20140325
  Receipt Date: 20140507
  Transmission Date: 20141212
  Serious: No
  Sender: FDA-Public Use
  Company Number: US-009507513-1403USA011212

PATIENT
  Age: 57 Year
  Sex: Female

DRUGS (8)
  1. PEGINTRON [Suspect]
     Indication: HEPATITIS C
     Dosage: 96 MICROGRAM, ONCE WEEKLY, REDIPEN
     Route: 058
     Dates: start: 20140203
  2. PEGINTRON [Suspect]
     Dosage: 48 MICROGRAM, QW, REDIPEN
     Route: 058
     Dates: start: 2014
  3. REBETOL [Suspect]
     Dosage: UNK
     Route: 048
  4. SOVALDI [Suspect]
     Dosage: UNK
  5. OMEPRAZOLE [Concomitant]
     Dosage: UNK
     Route: 048
  6. NUPRIN [Concomitant]
     Dosage: UNK
  7. DICYCLOMINE HYDROCHLORIDE [Concomitant]
     Dosage: UNK
  8. QUETIAPINE FUMARATE [Concomitant]
     Dosage: UNK

REACTIONS (7)
  - Neutropenia [Not Recovered/Not Resolved]
  - Myalgia [Not Recovered/Not Resolved]
  - Contusion [Not Recovered/Not Resolved]
  - Migraine [Not Recovered/Not Resolved]
  - Product container issue [Unknown]
  - Wrong technique in drug usage process [Unknown]
  - White blood cell count decreased [Not Recovered/Not Resolved]
